FAERS Safety Report 19178849 (Version 1)
Quarter: 2021Q2

REPORT INFORMATION
  Report Type: Spontaneous
  Country: US (occurrence: US)
  Receive Date: 20210421
  Receipt Date: 20210421
  Transmission Date: 20210717
  Serious: No
  Sender: FDA-Public Use
  Company Number: None

PATIENT
  Age: 73 Year
  Sex: Female
  Weight: 56.7 kg

DRUGS (2)
  1. REMICADE [Concomitant]
     Active Substance: INFLIXIMAB
     Dates: start: 20210421, end: 20210421
  2. REMICADE [Suspect]
     Active Substance: INFLIXIMAB
     Indication: PSORIASIS
     Dosage: ?          OTHER FREQUENCY:AT DAY 0 AND 14;?
     Route: 042
     Dates: start: 20210421, end: 20210421

REACTIONS (7)
  - Blood pressure increased [None]
  - Back pain [None]
  - Feeling cold [None]
  - Abdominal discomfort [None]
  - Flushing [None]
  - Tremor [None]
  - Pain in extremity [None]

NARRATIVE: CASE EVENT DATE: 20210421
